FAERS Safety Report 6057686-8 (Version None)
Quarter: 2009Q1

REPORT INFORMATION
  Report Type: 
  Country: None (occurrence: None)
  Receive Date: 20090129
  Receipt Date: 20080311
  Transmission Date: 20090719
  Serious: No
  Sender: FDA-Public Use
  Company Number: A0714618A

PATIENT
  Sex: Female

DRUGS (4)
  1. MEPRON [Suspect]
     Indication: LYME DISEASE
     Dosage: 5ML TWICE PER DAY
     Route: 048
  2. CENTRUM [Concomitant]
  3. SOY SUPPLEMENT [Concomitant]
  4. UNKNOWN MEDICATION [Concomitant]

REACTIONS (1)
  - BACK PAIN [None]
